FAERS Safety Report 15705627 (Version 3)
Quarter: 2019Q1

REPORT INFORMATION
  Report Type: Spontaneous
  Country: JP (occurrence: JP)
  Receive Date: 20181210
  Receipt Date: 20190116
  Transmission Date: 20190417
  Serious: Yes (Other)
  Sender: FDA-Public Use
  Company Number: JP-JNJFOC-20181209506

PATIENT
  Age: 70 Year
  Sex: Male
  Weight: 59 kg

DRUGS (14)
  1. MICARDIS [Concomitant]
     Active Substance: TELMISARTAN
     Dosage: STARTED BEFORE 2009
     Route: 048
  2. CANAGLU [Suspect]
     Active Substance: CANAGLIFLOZIN
     Indication: TYPE 2 DIABETES MELLITUS
     Route: 048
     Dates: start: 20160901, end: 20181126
  3. SERMION [Concomitant]
     Active Substance: NICERGOLINE
     Indication: DIZZINESS
     Dosage: 5 MG PER DAY, THRICE PER DAY
     Route: 048
     Dates: start: 20171106
  4. SUREPOST [Concomitant]
     Active Substance: REPAGLINIDE
     Indication: TYPE 2 DIABETES MELLITUS
     Dosage: DOSE: 2 MG/DAY
     Route: 048
     Dates: start: 20160224
  5. PANALDINE [Concomitant]
     Active Substance: TICLOPIDINE HYDROCHLORIDE
     Indication: PROPHYLAXIS
     Route: 048
     Dates: start: 200202
  6. PANALDINE [Concomitant]
     Active Substance: TICLOPIDINE HYDROCHLORIDE
     Indication: PROPHYLAXIS
     Route: 048
  7. CEROCRAL [Concomitant]
     Active Substance: IFENPRODIL
     Indication: DIZZINESS
     Dosage: 20 MG/DAY, THRICE/DAY
     Route: 048
     Dates: start: 20171204
  8. SEIBULE [Concomitant]
     Active Substance: MIGLITOL
     Indication: TYPE 2 DIABETES MELLITUS
     Route: 048
     Dates: start: 20150603
  9. LIVALO [Concomitant]
     Active Substance: PITAVASTATIN CALCIUM
     Route: 048
     Dates: start: 20180927
  10. PANALDINE [Concomitant]
     Active Substance: TICLOPIDINE HYDROCHLORIDE
     Indication: CEREBRAL INFARCTION
     Route: 048
     Dates: start: 200202
  11. PANALDINE [Concomitant]
     Active Substance: TICLOPIDINE HYDROCHLORIDE
     Indication: CEREBRAL INFARCTION
     Route: 048
  12. NORVASC [Concomitant]
     Active Substance: AMLODIPINE BESYLATE
     Route: 048
     Dates: start: 20100331
  13. ZAFATEK [Concomitant]
     Active Substance: TRELAGLIPTIN SUCCINATE
     Indication: TYPE 2 DIABETES MELLITUS
     Route: 048
     Dates: start: 20170222
  14. GRANDAXIN [Concomitant]
     Active Substance: TOFISOPAM
     Indication: DIZZINESS
     Route: 048
     Dates: start: 20180730

REACTIONS (1)
  - Lateral medullary syndrome [Recovered/Resolved with Sequelae]

NARRATIVE: CASE EVENT DATE: 20181112
